FAERS Safety Report 8270818-6 (Version None)
Quarter: 2012Q2

REPORT INFORMATION
  Report Type: 
  Country: None (occurrence: None)
  Receive Date: 20120410
  Receipt Date: 20120404
  Transmission Date: 20120825
  Serious: Yes (Other)
  Sender: FDA-Public Use
  Company Number: US-PFIZER INC-2012085796

PATIENT
  Sex: Male

DRUGS (12)
  1. NEURONTIN [Suspect]
     Indication: PAIN
     Dosage: 300 MG, 1X/DAY
     Route: 048
  2. INSULIN DETEMIR [Concomitant]
     Indication: DIABETES MELLITUS
     Dosage: 90 UNITS, UNK
  3. JANUVIA [Concomitant]
     Indication: DIABETES MELLITUS
     Dosage: 100 MG, 1X/DAY
  4. LASIX [Concomitant]
     Dosage: 40 MG, 1X/DAY
  5. OXYGEN [Concomitant]
     Dosage: 2L, UNK
  6. NEURONTIN [Suspect]
     Dosage: 300 MG, 4X/DAY
     Route: 048
  7. NEURONTIN [Suspect]
     Dosage: UNK
     Route: 048
  8. VICODIN [Concomitant]
     Indication: BACK PAIN
     Dosage: UNK
  9. METFORMIN [Concomitant]
     Indication: DIABETES MELLITUS
     Dosage: 2000 MG, 1X/DAY
  10. AVALIDE [Concomitant]
     Indication: HYPERTENSION
     Dosage: 300/25 MG, UNK
  11. SIMVASTATIN [Concomitant]
     Indication: BLOOD CHOLESTEROL INCREASED
     Dosage: UNK
  12. TRICOR [Concomitant]
     Indication: BLOOD TRIGLYCERIDES INCREASED
     Dosage: UNK

REACTIONS (3)
  - PAIN [None]
  - PNEUMOTHORAX [None]
  - CHRONIC OBSTRUCTIVE PULMONARY DISEASE [None]
